FAERS Safety Report 9422197 (Version 1)
Quarter: 2013Q3

REPORT INFORMATION
  Report Type: Report from Study
  Country: US (occurrence: US)
  Receive Date: 20130726
  Receipt Date: 20130726
  Transmission Date: 20140515
  Serious: Yes (Other)
  Sender: FDA-Public Use
  Company Number: US-MYLANLABS-2013S1013553

PATIENT
  Age: 25 Year
  Sex: Female
  Weight: 72.58 kg

DRUGS (12)
  1. AMNESTEEM CAPSULES [Suspect]
     Indication: ACNE
     Route: 048
     Dates: start: 20130206, end: 20130614
  2. AMNESTEEM CAPSULES [Suspect]
     Indication: SCAR
     Route: 048
     Dates: start: 20130206, end: 20130614
  3. CLARAVIS [Suspect]
     Indication: ACNE
     Route: 048
     Dates: start: 20130206, end: 2013
  4. CLARAVIS [Suspect]
     Indication: SCAR
     Route: 048
     Dates: start: 20130206, end: 2013
  5. CLARAVIS [Suspect]
     Indication: ACNE
     Route: 048
     Dates: start: 2013, end: 2013
  6. CLARAVIS [Suspect]
     Indication: SCAR
     Route: 048
     Dates: start: 2013, end: 2013
  7. AMNESTEEM CAPSULES [Suspect]
     Indication: ACNE
     Route: 048
     Dates: start: 20130206, end: 20130614
  8. AMNESTEEM CAPSULES [Suspect]
     Indication: SCAR
     Route: 048
     Dates: start: 20130206, end: 20130614
  9. ORAL CONTRACEPTIVE NOS [Concomitant]
  10. PREDNISONE [Concomitant]
     Dates: start: 20130206
  11. TRIAMCINOLONE [Concomitant]
     Dosage: CREAM
     Dates: start: 20130408
  12. LOCOID [Concomitant]
     Dosage: OINMENT
     Dates: start: 20130206

REACTIONS (11)
  - Suicidal ideation [Not Recovered/Not Resolved]
  - Depression [Recovered/Resolved]
  - Mood altered [Not Recovered/Not Resolved]
  - Headache [Recovered/Resolved]
  - Pain [Recovered/Resolved]
  - Bone pain [Not Recovered/Not Resolved]
  - Arthralgia [Not Recovered/Not Resolved]
  - Visual impairment [Not Recovered/Not Resolved]
  - Dry eye [Not Recovered/Not Resolved]
  - Lip dry [Not Recovered/Not Resolved]
  - Dry skin [Not Recovered/Not Resolved]
